FAERS Safety Report 4854418-3 (Version None)
Quarter: 2005Q4

REPORT INFORMATION
  Report Type: 
  Country: None (occurrence: None)
  Receive Date: 20051214
  Receipt Date: 20051214
  Transmission Date: 20060501
  Serious: Yes (Hospitalization, Other)
  Sender: FDA-Public Use
  Company Number: None

PATIENT
  Age: 60 Year
  Sex: Female
  Weight: 105 kg

DRUGS (6)
  1. VINORELBINE TARTRATE [Suspect]
     Indication: SQUAMOUS CELL CARCINOMA OF THE CERVIX
     Dosage: SEE IMAGE
     Route: 042
     Dates: start: 20051122
  2. CISPLATIN [Suspect]
     Dosage: SEE IMAGE
     Route: 042
     Dates: start: 20051122, end: 20051122
  3. MISCARDIS/HCT [Concomitant]
  4. PEPCID [Concomitant]
  5. SENOKOT [Concomitant]
  6. STOOL SOFTENERS [Concomitant]

REACTIONS (5)
  - ANOREXIA [None]
  - BODY TEMPERATURE INCREASED [None]
  - FATIGUE [None]
  - NEUTROPHIL COUNT DECREASED [None]
  - WHITE BLOOD CELL COUNT DECREASED [None]
